FAERS Safety Report 14311735 (Version 1)
Quarter: 2017Q4

REPORT INFORMATION
  Report Type: Spontaneous
  Country: DE (occurrence: DE)
  Receive Date: 20171221
  Receipt Date: 20171221
  Transmission Date: 20180321
  Serious: Yes (Life-Threatening, Hospitalization)
  Sender: FDA-Public Use
  Company Number: DE-CIPLA LTD.-2017DE23813

PATIENT

DRUGS (7)
  1. TOREM [Concomitant]
     Active Substance: TORSEMIDE
     Dosage: 5 MG, PER DAY
     Route: 048
  2. HUMALOG [Concomitant]
     Active Substance: INSULIN LISPRO
     Dosage: UNK, PER DAY
     Route: 065
     Dates: start: 20170809
  3. RISPERIDONE. [Suspect]
     Active Substance: RISPERIDONE
     Indication: DELIRIUM
     Dosage: 2 MG, PER DAY
     Route: 048
     Dates: end: 20170814
  4. ASPIRIN. [Concomitant]
     Active Substance: ASPIRIN
     Dosage: 10 MG, PER DAY, ONGOING SINCE MONTHS
     Route: 048
  5. METFORMIN [Concomitant]
     Active Substance: METFORMIN HYDROCHLORIDE
     Dosage: 1700 MG, PER DAY
     Route: 048
  6. RISPERIDONE. [Interacting]
     Active Substance: RISPERIDONE
     Dosage: 1 MG, PER DAY
     Route: 048
     Dates: start: 20170815, end: 20170816
  7. MELPERON [Interacting]
     Active Substance: MELPERONE
     Indication: PRODUCT USED FOR UNKNOWN INDICATION
     Dosage: 75 MG, PER DAY
     Route: 048
     Dates: end: 20170817

REACTIONS (3)
  - Drug interaction [Recovered/Resolved]
  - Pleurothotonus [Recovered/Resolved]
  - Haematoma [Unknown]

NARRATIVE: CASE EVENT DATE: 201708
